FAERS Safety Report 7635463-1 (Version None)
Quarter: 2011Q3

REPORT INFORMATION
  Report Type: 
  Country: None (occurrence: None)
  Receive Date: 20110726
  Receipt Date: 20110726
  Transmission Date: 20111222
  Serious: Yes (Other)
  Sender: FDA-Public Use
  Company Number: None

PATIENT
  Sex: Male
  Weight: 75.7 kg

DRUGS (1)
  1. GADOPENTETATE DIMEGLUMINE [Suspect]
     Indication: CEREBROVASCULAR ACCIDENT
     Dosage: 24G
     Route: 042
     Dates: start: 20110616, end: 20110616

REACTIONS (2)
  - EYELID OEDEMA [None]
  - ERYTHEMA OF EYELID [None]
